FAERS Safety Report 9989104 (Version 2)
Quarter: 2014Q1

REPORT INFORMATION
  Report Type: Report from Study
  Country: PR (occurrence: PR)
  Receive Date: 20140310
  Receipt Date: 20140310
  Transmission Date: 20141002
  Serious: No
  Sender: FDA-Public Use
  Company Number: PR-ABBVIE-13P-131-1126388-00

PATIENT
  Sex: Female
  Weight: 75.82 kg

DRUGS (11)
  1. HUMIRA [Suspect]
     Indication: RHEUMATOID ARTHRITIS
     Route: 058
     Dates: start: 201305
  2. NEURONTIN [Concomitant]
     Indication: PAIN
  3. TRAMADOL [Concomitant]
     Indication: INFLAMMATION
  4. METHOTREXATE [Concomitant]
     Indication: RHEUMATOID ARTHRITIS
     Route: 048
  5. METOPROLOL [Concomitant]
     Indication: HYPERTENSION
  6. DIURETICS [Concomitant]
     Indication: FIBROMYALGIA
     Route: 048
  7. UNKNOWN MEDICATION [Concomitant]
     Indication: ANGINA PECTORIS
     Route: 048
  8. UNKNOWN MEDICATION [Concomitant]
     Indication: ANXIETY
     Route: 048
  9. XANAX [Concomitant]
     Indication: ANXIETY
     Route: 048
  10. UNKNOWN MEDICATION [Concomitant]
     Indication: BLOOD CHOLESTEROL
     Route: 048
  11. CYMBALTA [Concomitant]
     Indication: FIBROMYALGIA
     Route: 048

REACTIONS (2)
  - Contusion [Recovered/Resolved]
  - Urinary tract infection [Recovered/Resolved]
